FAERS Safety Report 8829552 (Version 2)
Quarter: 2014Q3

REPORT INFORMATION
  Report Type: Report from Study
  Country: US (occurrence: US)
  Receive Date: 20121008
  Receipt Date: 20140911
  Transmission Date: 20150326
  Serious: Yes (Hospitalization)
  Sender: FDA-Public Use
  Company Number: US-ROCHE-1130738

PATIENT
  Sex: Male
  Weight: 62 kg

DRUGS (2)
  1. RITUXAN [Suspect]
     Active Substance: RITUXIMAB
     Indication: APLASTIC ANAEMIA
     Dosage: 20/MAY/2003, 17/JUN/2003, 05/SEP/2003
     Route: 042
     Dates: start: 20031028
  2. RITUXAN [Suspect]
     Active Substance: RITUXIMAB
     Indication: OFF LABEL USE
     Route: 042

REACTIONS (2)
  - Off label use [Unknown]
  - Red blood cell abnormality [Unknown]
